FAERS Safety Report 8066396-7 (Version None)
Quarter: 2012Q1

REPORT INFORMATION
  Report Type: 
  Country: None (occurrence: None)
  Receive Date: 20120124
  Receipt Date: 20120124
  Transmission Date: 20120608
  Serious: Yes (Hospitalization)
  Sender: FDA-Public Use
  Company Number: None

PATIENT
  Age: 69 Year
  Sex: Female
  Weight: 58 kg

DRUGS (13)
  1. FLUTICASONE/SALMETEROL INHALER 500/50 [Concomitant]
     Route: 048
  2. LISINOPRIL [Concomitant]
     Route: 048
  3. ALBUTEROL/IPRATROPIUM NEBULIZER [Concomitant]
     Route: 048
  4. CEFEPIME [Concomitant]
     Route: 042
  5. FLUCONAZOLE [Concomitant]
     Route: 048
  6. METHYLPREDNISOLONE [Suspect]
     Indication: CHRONIC OBSTRUCTIVE PULMONARY DISEASE
     Dosage: 80 MG
     Route: 042
     Dates: start: 20110921, end: 20110924
  7. METHYLPREDNISOLONE [Suspect]
     Indication: CONDITION AGGRAVATED
     Dosage: 80 MG
     Route: 042
     Dates: start: 20110921, end: 20110924
  8. THEOPHYLLINE [Concomitant]
     Route: 048
  9. LEVOFLOXACIN [Concomitant]
     Route: 042
  10. PANTOPRAZOLE [Concomitant]
     Route: 048
  11. TIOTROPIUM INHALER [Concomitant]
     Route: 048
  12. ENOXAPARIN [Concomitant]
     Route: 058
  13. CALCIUM + VITAMIN D [Concomitant]
     Route: 048

REACTIONS (5)
  - PSYCHOTIC DISORDER [None]
  - VENTRICULAR TACHYCARDIA [None]
  - CONFUSIONAL STATE [None]
  - DELIRIUM [None]
  - HALLUCINATION [None]
